FAERS Safety Report 20322845 (Version 5)
Quarter: 2022Q4

REPORT INFORMATION
  Report Type: Spontaneous
  Country: CA (occurrence: CA)
  Receive Date: 20220111
  Receipt Date: 20221221
  Transmission Date: 20230112
  Serious: Yes (Hospitalization, Other)
  Sender: FDA-Public Use
  Company Number: CA-ORGANON-O2201CAN000506

PATIENT
  Age: 11 Year
  Sex: Male

DRUGS (151)
  1. SINGULAIR [Suspect]
     Active Substance: MONTELUKAST SODIUM
     Indication: Pain
     Dosage: 10.0 MILLIGRAM, 1 EVERY 1 DAYS, DOSAGE FORM REPORTED AS NOT SPECIFIED
     Route: 048
  2. SINGULAIR [Suspect]
     Active Substance: MONTELUKAST SODIUM
     Indication: Child abuse
     Dosage: 10 MILLIGRAM, 1 EVERY 24 HOUR (Q24H)
     Route: 048
  3. SINGULAIR [Suspect]
     Active Substance: MONTELUKAST SODIUM
     Indication: Product used for unknown indication
     Dosage: 10 MILLIGRAM, 1 EVERY 1 DAY (QD)
     Route: 048
  4. SINGULAIR [Suspect]
     Active Substance: MONTELUKAST SODIUM
     Dosage: 10 MICROGRAM, 1 EVERY 1 DAY
     Route: 048
  5. ARIPIPRAZOLE [Suspect]
     Active Substance: ARIPIPRAZOLE
     Indication: Product used for unknown indication
     Dosage: 2 MILLIGRAM, 3 EVERY 1 DAY (TID)
     Route: 048
  6. ARIPIPRAZOLE [Suspect]
     Active Substance: ARIPIPRAZOLE
     Indication: Child abuse
     Dosage: 2.0 MILLIGRAM, 1 EVERY 8 HOURS (Q8H), DOSAGE FORM: NOT SPECIFIED
     Route: 048
  7. ARIPIPRAZOLE [Suspect]
     Active Substance: ARIPIPRAZOLE
     Dosage: 2.0 MILLIGRAM, 1 EVERY 1 DAYS, DOSAGE FORM: NOT SPECIFIED
     Route: 048
  8. ARIPIPRAZOLE [Suspect]
     Active Substance: ARIPIPRAZOLE
     Dosage: 2.0 MILLIGRAM, 1 EVERY 8 HOURS (DOSAGE FORM: NOT SPECIFIED)
     Route: 048
  9. BACLOFEN [Suspect]
     Active Substance: BACLOFEN
     Indication: Child abuse
     Dosage: 20.0 MILLIGRAM, 1 EVERY 8 HOURS (3 EVERY 1 DAYS) (DOSAGE FORM: NOT SPECIFIED)
     Route: 048
  10. BACLOFEN [Suspect]
     Active Substance: BACLOFEN
     Indication: Product used for unknown indication
     Dosage: 1500.0 MILLIGRAM, 1 EVERY 1 DAY (QD)
     Route: 048
  11. BACLOFEN [Suspect]
     Active Substance: BACLOFEN
     Dosage: 20 MILLIGRAM, 1 EVERY 8 HOURS (Q8H); DOSAGE FORM: NOT SPECIFIED
     Route: 065
  12. BISACODYL [Suspect]
     Active Substance: BISACODYL
     Indication: Product used for unknown indication
     Dosage: 5.0 MILLIGRAM, 1 EVERY 1 DAYS (1 EVERY 24 HOURS) (DOSAGE FORM: NOT SPECIFIED)
     Route: 048
  13. BISACODYL [Suspect]
     Active Substance: BISACODYL
     Indication: Child abuse
     Dosage: UNK; DOSAGE FORM: NOT SPECIFIED
     Route: 065
  14. CELECOXIB [Suspect]
     Active Substance: CELECOXIB
     Indication: Pain management
     Dosage: 100 MILLIGRAM, 2 EVERY 1 DAY (BID)
     Route: 048
  15. CELECOXIB [Suspect]
     Active Substance: CELECOXIB
     Indication: Child abuse
     Dosage: 100 MILLIGRAM, 1 EVERY 5 DAYS (Q5H)
     Route: 048
  16. CELECOXIB [Suspect]
     Active Substance: CELECOXIB
     Indication: Back pain
     Dosage: 100 MILLIGRAM, 1 EVERY 12 HOURS (Q12H)
     Route: 048
  17. CELECOXIB [Suspect]
     Active Substance: CELECOXIB
     Dosage: UNK
     Route: 065
  18. CELECOXIB [Suspect]
     Active Substance: CELECOXIB
     Dosage: 100.0 MILLIGRAM, 1 EVERY 12 HOURS (2 EVERY 1 DAYS)
     Route: 048
  19. CELECOXIB [Suspect]
     Active Substance: CELECOXIB
     Dosage: UNK
     Route: 065
  20. CELECOXIB [Suspect]
     Active Substance: CELECOXIB
     Dosage: UNK
     Route: 065
  21. CLOBAZAM [Suspect]
     Active Substance: CLOBAZAM
     Indication: Child abuse
     Dosage: 20.0MILLIGRAM, 2 EVERY ONE DAY (BID)
     Route: 048
  22. CLOBAZAM [Suspect]
     Active Substance: CLOBAZAM
     Indication: Back pain
     Dosage: 20.0 MILLIGRAM, EVERY 5 HOURS (Q5H)
     Route: 048
  23. CLOBAZAM [Suspect]
     Active Substance: CLOBAZAM
     Indication: Product used for unknown indication
     Dosage: 20.0 MILLIGRAM,1 EVERY 12 HOURS (2 EVERY 1 DAYS)
     Route: 048
  24. CLOBAZAM [Suspect]
     Active Substance: CLOBAZAM
     Dosage: 20.0 MILLIGRAM,1 EVERY 12 HOURS (2 EVERY 1 DAYS)
     Route: 048
  25. CLOBAZAM [Suspect]
     Active Substance: CLOBAZAM
     Dosage: UNK
     Route: 065
  26. CLOBAZAM [Suspect]
     Active Substance: CLOBAZAM
     Dosage: 20 MILLIGRAM, 1 EVERY 5 DAYS (Q5D)
     Route: 048
  27. CLONIDINE [Suspect]
     Active Substance: CLONIDINE
     Indication: Child abuse
     Dosage: 0.1 MILLIGRAM 1 EVERY 1 DAYS (DOSAGE FORM: NOT SPECIFIED)
     Route: 048
  28. CLONIDINE [Suspect]
     Active Substance: CLONIDINE
     Indication: Product used for unknown indication
     Dosage: 0.05 MILLIGRAM 1 EVERY 1 DAYS (DOSAGE FORM: NOT SPECIFIED)
     Route: 048
  29. CLONIDINE [Suspect]
     Active Substance: CLONIDINE
     Dosage: 0.5 MILLIGRAM, 1 EVERY 5 DAYS (Q5D)
     Route: 048
  30. CLONIDINE [Suspect]
     Active Substance: CLONIDINE
     Dosage: 0.5 MILLIGRAM 1 EVERY 1 DAYS
     Route: 048
  31. CLONIDINE [Suspect]
     Active Substance: CLONIDINE
     Dosage: 0.5 MILLIGRAM, 1 EVERY 12 HOURS (Q12H)
     Route: 048
  32. CLONIDINE [Suspect]
     Active Substance: CLONIDINE
     Dosage: UNK
     Route: 048
  33. DIMENHYDRINATE [Suspect]
     Active Substance: DIMENHYDRINATE
     Indication: Constipation
     Dosage: 25.0 MILLIGRAM, 1 EVERY 1 DAYS (1 EVERY 24 HOURS) (ALSO REPORTED AS DOSAGE FORM: NOT SPECIFIED)
     Route: 048
  34. DIMENHYDRINATE [Suspect]
     Active Substance: DIMENHYDRINATE
     Indication: Child abuse
     Dosage: 20 MILLIGRAM, 1 EVERY 1 DAYS  (ALSO REPORTED AS DOSAGE FORM: NOT SPECIFIED)
     Route: 048
  35. DIMENHYDRINATE [Suspect]
     Active Substance: DIMENHYDRINATE
     Dosage: 12.5 MILLIGRAM, 1 EVERY 6 HOURS (DOSAGE FORM: NOT SPECIFIED)
     Route: 048
  36. DIMENHYDRINATE [Suspect]
     Active Substance: DIMENHYDRINATE
     Dosage: 25.0 MILLIGRAM, DOSAGE FORM: NOT SPECIFIED
     Route: 048
  37. DIPHENHYDRAMINE [Suspect]
     Active Substance: DIPHENHYDRAMINE
     Indication: Pruritus
     Dosage: 12.5 MILLIGRAM, 4 EVERY 1 DAY (Q4D)
     Route: 048
  38. DIPHENHYDRAMINE [Suspect]
     Active Substance: DIPHENHYDRAMINE
     Indication: Child abuse
     Dosage: 12.5 MILLIGRAM, 1 EVERY 6 HOURS
     Route: 048
  39. DIPHENHYDRAMINE [Suspect]
     Active Substance: DIPHENHYDRAMINE
     Dosage: 20.0 MILLIGRAM, 1 EVERY 1 DAY (QD)
     Route: 048
  40. DIPHENHYDRAMINE [Suspect]
     Active Substance: DIPHENHYDRAMINE
     Dosage: UNK
     Route: 065
  41. OMEGA-3 FATTY ACIDS [Suspect]
     Active Substance: OMEGA-3 FATTY ACIDS
     Indication: Product used for unknown indication
     Dosage: 1 EVERY 1 DAYS, 600 EICOSAPENTAENOIC ACID (EPA)/ 300 DOCOSAHEXAENOIC ACID (DHA)
     Route: 048
  42. OMEGA-3 FATTY ACIDS [Suspect]
     Active Substance: OMEGA-3 FATTY ACIDS
     Dosage: UNK
     Route: 048
  43. OMEGA-3 FATTY ACIDS [Suspect]
     Active Substance: OMEGA-3 FATTY ACIDS
     Dosage: 200 MILLIGRAM, 1 EVERY 1 DAYS
     Route: 048
  44. OMEGA-3 FATTY ACIDS [Suspect]
     Active Substance: OMEGA-3 FATTY ACIDS
     Dosage: 400 MILLIGRAM, 1 EVERY 1 DAYS
     Route: 048
  45. FLUOXETINE HYDROCHLORIDE [Suspect]
     Active Substance: FLUOXETINE HYDROCHLORIDE
     Indication: Child abuse
     Dosage: 20.0 MILLIGRAM, 1 EVERY 1 DAYS (1 EVERY 24 HOURS) (DOSAGE FORM: NOT SPECIFIED)
     Route: 048
  46. FLUOXETINE HYDROCHLORIDE [Suspect]
     Active Substance: FLUOXETINE HYDROCHLORIDE
     Indication: Product used for unknown indication
  47. FLUTICASONE [Suspect]
     Active Substance: FLUTICASONE
     Indication: Product used for unknown indication
     Dosage: UNK
     Route: 065
  48. GABAPENTIN [Suspect]
     Active Substance: GABAPENTIN
     Indication: Pain management
     Dosage: 600.0 MILLIGRAM, 1 EVERY 8 HOURS (3 EVERY 1 DAYS) (ALSO REPORTED AS DOSAGE FORM: NOT SPECIFIED)
     Route: 048
  49. GABAPENTIN [Suspect]
     Active Substance: GABAPENTIN
     Indication: Child abuse
     Dosage: 600.0 MILLIGRAM, 1 EVERY 8 HOURS (Q8H)
     Route: 048
  50. GABAPENTIN [Suspect]
     Active Substance: GABAPENTIN
     Indication: Back pain
     Dosage: UNK
     Route: 065
  51. HYDROMORPHONE HYDROCHLORIDE [Suspect]
     Active Substance: HYDROMORPHONE HYDROCHLORIDE
     Indication: Pain management
     Dosage: UNK
     Route: 065
  52. HYDROMORPHONE HYDROCHLORIDE [Suspect]
     Active Substance: HYDROMORPHONE HYDROCHLORIDE
     Indication: Child abuse
     Dosage: 600 MILLIGRAM, 1 EVERY 8 HOURS (Q8H)
     Route: 048
  53. HYDROMORPHONE HYDROCHLORIDE [Suspect]
     Active Substance: HYDROMORPHONE HYDROCHLORIDE
     Indication: Back pain
     Dosage: UNK
     Route: 065
  54. HYDROXYCHLOROQUINE SULFATE [Suspect]
     Active Substance: HYDROXYCHLOROQUINE SULFATE
     Indication: Product used for unknown indication
     Dosage: 400.0 MILLIGRAM, 1 EVERY 1 DAYS (1 EVERY 24 HOURS)
     Route: 048
  55. HYDROXYCHLOROQUINE SULFATE [Suspect]
     Active Substance: HYDROXYCHLOROQUINE SULFATE
     Indication: Child abuse
  56. KETOROLAC TROMETHAMINE [Suspect]
     Active Substance: KETOROLAC TROMETHAMINE
     Indication: Pain
     Dosage: 20.0 MILLIGRAM, 4 EVERY 1 DAYS (DOSAGE FORM: NOT SPECIFIED)
     Route: 048
  57. KETOROLAC TROMETHAMINE [Suspect]
     Active Substance: KETOROLAC TROMETHAMINE
     Indication: Child abuse
     Dosage: UNK
     Route: 065
  58. KETOROLAC TROMETHAMINE [Suspect]
     Active Substance: KETOROLAC TROMETHAMINE
     Indication: Product used for unknown indication
     Dosage: UNK
     Route: 065
  59. KETOROLAC TROMETHAMINE [Suspect]
     Active Substance: KETOROLAC TROMETHAMINE
     Dosage: 20 MILLIGRAM, 1 EVERY 6 HOURS (Q6H)
     Route: 048
  60. LEUPROLIDE ACETATE [Suspect]
     Active Substance: LEUPROLIDE ACETATE
     Indication: Child abuse
     Dosage: 7.5 MILLIGRAM, 1 EVERY 1 MONTH (DOSAGE FORM: NOT SPECIFIED)
     Route: 030
  61. LEUPROLIDE ACETATE [Suspect]
     Active Substance: LEUPROLIDE ACETATE
     Indication: Product used for unknown indication
     Dosage: 7.5 MILLIGRAM, 1 EVERY 30 DAYS (DOSAGE FORM: NOT SPECIFIED)
     Route: 030
  62. LEUPROLIDE ACETATE [Suspect]
     Active Substance: LEUPROLIDE ACETATE
     Dosage: 7.5 MILLIGRAM, 1 EVERY 1 MONTH (1 EVERY 30 DAYS)
     Route: 030
  63. LEUPROLIDE ACETATE [Suspect]
     Active Substance: LEUPROLIDE ACETATE
     Dosage: 0.25 MILLIGRAM, 1 EVERY 1 DAYS
     Route: 030
  64. LORAZEPAM [Suspect]
     Active Substance: LORAZEPAM
     Indication: Seizure
     Dosage: UNK
     Route: 065
  65. LORAZEPAM [Suspect]
     Active Substance: LORAZEPAM
     Indication: Pain management
     Dosage: 0.5 MILLIGRAM 1 EVERY 1 DAYS (DOSAGE FORM: NOT SPECIFIED)
     Route: 060
  66. LORAZEPAM [Suspect]
     Active Substance: LORAZEPAM
     Indication: Muscle spasms
     Dosage: 2.0 MILLIGRAM  1 EVERY 1 DAYS, DOSAGE FORM:NOT SPECIFIED
     Route: 060
  67. LORAZEPAM [Suspect]
     Active Substance: LORAZEPAM
     Indication: Child abuse
     Dosage: 30 MILLIGRAM, 2 EVERY 1 DAY (BID)
     Route: 048
  68. LORAZEPAM [Suspect]
     Active Substance: LORAZEPAM
     Indication: Back pain
     Dosage: UNK
     Route: 065
  69. LORAZEPAM [Suspect]
     Active Substance: LORAZEPAM
     Dosage: UNK, DOSAGE FORM: NOT SPECIFIED
     Route: 065
  70. LORAZEPAM [Suspect]
     Active Substance: LORAZEPAM
     Dosage: UNK, DOSAGE FORM: NOT SPECIFIED
     Route: 065
  71. LORAZEPAM [Suspect]
     Active Substance: LORAZEPAM
     Dosage: DOSAGE FORM: NOT SPECIFIED
     Route: 060
  72. LORAZEPAM [Suspect]
     Active Substance: LORAZEPAM
     Dosage: 0.5 MILLIGRAM, DOSAGE FORM: NOT SPECIFIED
     Route: 060
  73. LORAZEPAM [Suspect]
     Active Substance: LORAZEPAM
     Dosage: 2 MILLIGRAM, DOSAGE FORM: NOT SPECIFIED
     Route: 060
  74. POLYETHYLENE GLYCOL 3350 [Suspect]
     Active Substance: POLYETHYLENE GLYCOL 3350
     Indication: Product used for unknown indication
     Dosage: 30 MILLIGRAM, 2 EVERY 1 DAY (BID)
     Route: 048
  75. POLYETHYLENE GLYCOL 3350 [Suspect]
     Active Substance: POLYETHYLENE GLYCOL 3350
     Indication: Child abuse
     Dosage: 30 MILLIGRAM, 1 EVERY 5 DAYS (Q5D)
     Route: 048
  76. POLYETHYLENE GLYCOL 3350 [Suspect]
     Active Substance: POLYETHYLENE GLYCOL 3350
     Dosage: 30.0 MILLIGRAM, 1 EVERY 12 HOURS (2 EVERY 1 DAYS)
     Route: 048
  77. POLYETHYLENE GLYCOL 3350 [Suspect]
     Active Substance: POLYETHYLENE GLYCOL 3350
     Dosage: UNK
     Route: 065
  78. MELATONIN [Suspect]
     Active Substance: MELATONIN
     Indication: Sleep deficit
     Dosage: DOSAGE FORM: NOT SPECIFIED
     Route: 048
  79. MELATONIN [Suspect]
     Active Substance: MELATONIN
     Indication: Child abuse
     Dosage: 10 MILLIGRAM, 1 EVERY 1 DAY (QD), DOSAGE FORM NOT SPECIFIED
     Route: 048
  80. MELATONIN [Suspect]
     Active Substance: MELATONIN
     Indication: Sleep disorder
  81. METHADONE [Suspect]
     Active Substance: METHADONE HYDROCHLORIDE
     Indication: Child abuse
     Dosage: 2.0 MILLIGRAM, 1 EVERY 8 HOURS (3 EVERY 1 DAYS) (DOSAGE FORM: NOT SPECIFIED)
     Route: 048
  82. METHADONE [Suspect]
     Active Substance: METHADONE HYDROCHLORIDE
     Indication: Back pain
     Dosage: UNK; DOSAGE FORM: NOT SPECIFIED
     Route: 065
  83. METHADONE [Suspect]
     Active Substance: METHADONE HYDROCHLORIDE
     Indication: Product used for unknown indication
     Dosage: 0.375 MILLIGRAM, 1 EVERY 1 DAYS, DOSAGE FORM: NOT SPECIFIED
     Route: 065
  84. METHOCARBAMOL [Suspect]
     Active Substance: METHOCARBAMOL
     Indication: Product used for unknown indication
     Dosage: UNK; DOSAGE FORM NOT SPECIFIED
     Route: 065
  85. METHOCARBAMOL [Suspect]
     Active Substance: METHOCARBAMOL
     Dosage: 1 EVERY 12 HOURS; DOSAGE FORM: NOT SPECIFIED
     Route: 048
  86. METHOCARBAMOL [Suspect]
     Active Substance: METHOCARBAMOL
     Dosage: 2 MILLIGRAM, 3 EVERY 1 DAYS, DOSAGE FORM: NOT SPECIFIED
     Route: 065
  87. ACETAMINOPHEN\METHOCARBAMOL [Suspect]
     Active Substance: ACETAMINOPHEN\METHOCARBAMOL
     Indication: Product used for unknown indication
     Dosage: 2 EVERY 1 DAYS
     Route: 048
  88. ACETAMINOPHEN\METHOCARBAMOL [Suspect]
     Active Substance: ACETAMINOPHEN\METHOCARBAMOL
     Indication: Child abuse
     Dosage: 400 MILLIGRAM 1 EVERY 12 HOURS
     Route: 048
  89. ACETAMINOPHEN\METHOCARBAMOL [Suspect]
     Active Substance: ACETAMINOPHEN\METHOCARBAMOL
     Indication: Back pain
     Dosage: UNK
     Route: 065
  90. PANTOPRAZOLE SODIUM ANHYDROUS [Suspect]
     Active Substance: PANTOPRAZOLE SODIUM ANHYDROUS
     Indication: Child abuse
     Dosage: 40.0 MILLIGRAM, 1 EVERY 1 DAYS (1 EVERY 24 HOURS) (DOSAGE FORM: NOT SPECIFIED)
     Route: 048
  91. PANTOPRAZOLE SODIUM ANHYDROUS [Suspect]
     Active Substance: PANTOPRAZOLE SODIUM ANHYDROUS
     Indication: Product used for unknown indication
  92. PHENOBARBITAL [Suspect]
     Active Substance: PHENOBARBITAL
     Indication: Child abuse
     Dosage: 30.0 MILLIGRAM, 1 EVERY 12 HOURS (2 EVERY 1 DAYS) (DOSAGE FORM: NOT SPECIFIED)
     Route: 048
  93. PHENOBARBITAL [Suspect]
     Active Substance: PHENOBARBITAL
     Indication: Product used for unknown indication
     Dosage: 30 MILLIGRAM, 1 EVERY 5 DAYS (Q5D)
     Route: 048
  94. RANITIDINE HYDROCHLORIDE [Suspect]
     Active Substance: RANITIDINE HYDROCHLORIDE
     Indication: Child abuse
     Dosage: 150.0 MILLIGRAM, 1 EVERY 1 DAYS (1 EVERY 24 HOURS) (DOSAGE FORM: NOT SPECIFIED)
     Route: 048
  95. RANITIDINE HYDROCHLORIDE [Suspect]
     Active Substance: RANITIDINE HYDROCHLORIDE
     Indication: Back pain
     Dosage: UNK
     Route: 065
  96. RANITIDINE HYDROCHLORIDE [Suspect]
     Active Substance: RANITIDINE HYDROCHLORIDE
     Indication: Product used for unknown indication
  97. ALBUTEROL SULFATE [Suspect]
     Active Substance: ALBUTEROL SULFATE
     Indication: Child abuse
     Dosage: 100.0 MILLIGRAM, 1 EVERY 4 HOURS, DOSAGE FORM: NOT SPECIFIED
     Route: 065
  98. ALBUTEROL SULFATE [Suspect]
     Active Substance: ALBUTEROL SULFATE
     Indication: Product used for unknown indication
     Dosage: 1 EVERY 4 HOURS (Q4H)
  99. ALBUTEROL SULFATE [Suspect]
     Active Substance: ALBUTEROL SULFATE
     Dosage: UNK; DOSAGE FORM: NOT REPORTED
  100. ALBUTEROL SULFATE [Suspect]
     Active Substance: ALBUTEROL SULFATE
     Dosage: 100.0 MICROGRAM
     Route: 065
  101. ALBUTEROL SULFATE [Suspect]
     Active Substance: ALBUTEROL SULFATE
     Dosage: 1 DOSAGE FORM 1 EVERY 4 HOURS; DOSAGE FORM: NOT SPECIFIED
  102. ALBUTEROL SULFATE [Suspect]
     Active Substance: ALBUTEROL SULFATE
     Dosage: 2.0 DOSAGE FORMS, 1 EVERY 4 HOURS
  103. ALBUTEROL SULFATE [Suspect]
     Active Substance: ALBUTEROL SULFATE
     Dosage: 100.0 MICROGRAM, 1 EVERY 4 HOURS (Q4H)
  104. ALBUTEROL SULFATE [Suspect]
     Active Substance: ALBUTEROL SULFATE
     Dosage: 2 DOSAGE FORM  (DOSAGE FORM: NOT SPECIFIED) (ROUTE: REPORTED AS INTRA-NASAL)
     Route: 065
  105. ALBUTEROL SULFATE [Suspect]
     Active Substance: ALBUTEROL SULFATE
     Dosage: 100 MICROGRAM, 1 EVERY 4 HOURS;  (DOSAGE FORM: NOT SPECIFIED) (ROUTE: REPORTED AS INTRA-NASAL)
     Route: 065
  106. VITAMIN C [Suspect]
     Active Substance: ASCORBIC ACID
     Indication: Child abuse
     Dosage: 1500.0 MILLIGRAM, 1 EVERY 1 DAYS (1 EVERY 24 HOURS) (DOSAGE FORM: NOT SPECIFIED)
     Route: 048
  107. VITAMIN C [Suspect]
     Active Substance: ASCORBIC ACID
     Indication: Product used for unknown indication
  108. VITAMIN D3 [Suspect]
     Active Substance: CHOLECALCIFEROL
     Indication: Vitamin supplementation
     Dosage: 200.0 INTERNATIONAL UNIT, 1 EVERY 1 DAYS (1 EVERY 24 HOURS)
     Route: 048
  109. VITAMIN D3 [Suspect]
     Active Substance: CHOLECALCIFEROL
     Indication: Child abuse
     Dosage: UNK
     Route: 065
  110. VITAMIN D3 [Suspect]
     Active Substance: CHOLECALCIFEROL
     Indication: Product used for unknown indication
     Dosage: UNK
     Route: 065
  111. VITAMIN D3 [Suspect]
     Active Substance: CHOLECALCIFEROL
     Dosage: 2000.0 IU, 1 EVERY 1 DAYS
     Route: 048
  112. SODIUM BICARBONATE [Suspect]
     Active Substance: SODIUM BICARBONATE
     Indication: Product used for unknown indication
     Dosage: UNK; DOSAGE FORM: NOT SPECIFIED
     Route: 065
  113. TYLENOL [Suspect]
     Active Substance: ACETAMINOPHEN
     Indication: Back pain
     Dosage: UNK; DOSAGE FORM: NOT SPECIFIED
  114. TYLENOL [Suspect]
     Active Substance: ACETAMINOPHEN
     Indication: Product used for unknown indication
     Dosage: 400 MILLIGRAM, 1 EVERY 12 HOURS (Q12H), DOSAGE FORM: NOT SPECIFIED
     Route: 048
  115. ROBAXACET [Suspect]
     Active Substance: ACETAMINOPHEN\METHOCARBAMOL
     Indication: Back pain
     Dosage: 900 MILLIGRAM, 1 EVERY 1 DAY
     Route: 048
  116. ACETAMINOPHEN\METHOCARBAMOL [Suspect]
     Active Substance: ACETAMINOPHEN\METHOCARBAMOL
     Indication: Back pain
     Dosage: 400 MILLIGRAM, 2 EVERY 1 DAYS
     Route: 048
  117. CHOLECALCIFEROL [Suspect]
     Active Substance: CHOLECALCIFEROL
     Indication: Vitamin supplementation
     Dosage: 2000 UNITS, 1 EVERY 1 DAYS (DOSAGE FORM: NOT SPECIFIED)
     Route: 048
  118. GABAPENTIN [Suspect]
     Active Substance: GABAPENTIN
     Indication: Pain management
     Dosage: 600 MILLIGRAM, 1 EVERY 8 HOURS (Q8H), DOSAGE FORM: NOT SPECIFIED
     Route: 048
  119. GABAPENTIN [Suspect]
     Active Substance: GABAPENTIN
     Indication: Back pain
     Dosage: 300.0 MILLIGRAM, 1 EVERY 8 HOURS, DOSAGE FORM:NOT SPECIFIED
     Route: 048
  120. GABAPENTIN [Suspect]
     Active Substance: GABAPENTIN
     Indication: Child abuse
  121. HYDROMORPHONE [Suspect]
     Active Substance: HYDROMORPHONE
     Indication: Pain management
     Dosage: 600 MILLIGRAM, 1 EVERY 8 HOURS (Q8H), DOSAGE FORM: NOT SPECIFIED
     Route: 048
  122. HYDROMORPHONE [Suspect]
     Active Substance: HYDROMORPHONE
     Indication: Child abuse
  123. HYDROMORPHONE [Suspect]
     Active Substance: HYDROMORPHONE
     Indication: Back pain
  124. MELATONIN [Suspect]
     Active Substance: MELATONIN
     Indication: Sleep disorder
     Dosage: UNK
     Route: 065
  125. MELATONIN [Suspect]
     Active Substance: MELATONIN
     Indication: Sleep deficit
     Dosage: 10.0 MILLIGRAM, 1 EVERY 1 DAYS
     Route: 048
  126. MELATONIN [Suspect]
     Active Substance: MELATONIN
     Indication: Child abuse
  127. FISH OIL [Suspect]
     Active Substance: FISH OIL
     Indication: Product used for unknown indication
     Dosage: 1 EVERY 24 HOURS (1 EVERY 1 DAY) (ALSO REPORTED AS 1 EVERY 1 DAY)
     Route: 048
  128. DOCONEXENT [Suspect]
     Active Substance: DOCONEXENT
     Indication: Product used for unknown indication
     Dosage: UNK
     Route: 065
  129. DULCOLAX (BISACODYL) [Suspect]
     Active Substance: BISACODYL
     Indication: Product used for unknown indication
     Dosage: 5 MILLIGRAM, 1 EVERY 1 DAYS, DOSAGE FORM: NOT SPECIFIED
     Route: 048
  130. DULCOLAX (BISACODYL) [Suspect]
     Active Substance: BISACODYL
     Indication: Child abuse
     Dosage: 12.5 MILLIGRAM, 1 EVERY 6 HOURS (Q6H)
     Route: 065
  131. FLUTICASONE FUROATE [Suspect]
     Active Substance: FLUTICASONE FUROATE
     Indication: Child abuse
     Dosage: 20.0 MILLIGRAM, 1 EVERY 1 DAYS (QD)
  132. FLUTICASONE FUROATE [Suspect]
     Active Substance: FLUTICASONE FUROATE
     Dosage: 2 DOSAGE FORM, 1 EVERY ONE DAYS (QD)
  133. FLUTICASONE PROPIONATE [Suspect]
     Active Substance: FLUTICASONE PROPIONATE
     Indication: Child abuse
     Dosage: 1 EVERY 1 DAYS
  134. FLUTICASONE PROPIONATE [Suspect]
     Active Substance: FLUTICASONE PROPIONATE
     Indication: Product used for unknown indication
     Dosage: 250 MICROGRAM, 1 EVERY 1 DAY (QD), (ROUTE WAS REPORTED AS INTRA-NASAL)
  135. FLUTICASONE PROPIONATE [Suspect]
     Active Substance: FLUTICASONE PROPIONATE
     Dosage: 2.0 DOSAGE FORMS, 1 EVERY 1 DAYS (DOSAGE FORM: NOT SPECIFIED)
  136. FLUTICASONE PROPIONATE [Suspect]
     Active Substance: FLUTICASONE PROPIONATE
     Dosage: 1 DOSAGE FORM, 1 EVERY 1 DAYS
  137. FLUTICASONE PROPIONATE [Suspect]
     Active Substance: FLUTICASONE PROPIONATE
     Dosage: 2 DOSAGE FORM, 1 EVERY 1 DAY (QD) (ROUTE WAS REPORTED AS INTRA-NASAL)
  138. FLUTICASONE PROPIONATE [Suspect]
     Active Substance: FLUTICASONE PROPIONATE
     Dosage: UNK
  139. GLYCOLIC ACID [Suspect]
     Active Substance: GLYCOLIC ACID
     Indication: Product used for unknown indication
     Dosage: UNK
     Route: 065
  140. POTASSIUM CHLORIDE [Suspect]
     Active Substance: POTASSIUM CHLORIDE
     Indication: Product used for unknown indication
     Dosage: UNK; DOSAGE FORM: NOT SPECIFIED
     Route: 065
  141. ACETAMINOPHEN\METHOCARBAMOL [Suspect]
     Active Substance: ACETAMINOPHEN\METHOCARBAMOL
     Indication: Product used for unknown indication
     Dosage: 1 EVERY 12 HOURS (Q12H)
     Route: 048
  142. ACETAMINOPHEN\METHOCARBAMOL [Suspect]
     Active Substance: ACETAMINOPHEN\METHOCARBAMOL
     Indication: Child abuse
     Dosage: 1 EVERY 1 DAY (QD)
     Route: 048
  143. ACETAMINOPHEN\METHOCARBAMOL [Suspect]
     Active Substance: ACETAMINOPHEN\METHOCARBAMOL
     Indication: Back pain
     Dosage: 900.0 MILLIGRAM, 1 EVERY 1 DAYS
     Route: 048
  144. ACETAMINOPHEN\METHOCARBAMOL [Suspect]
     Active Substance: ACETAMINOPHEN\METHOCARBAMOL
     Dosage: 400 MILLIGRAM, 1 EVERY 12 HOURS (Q12H)
     Route: 048
  145. ROBAXISAL [Suspect]
     Active Substance: ASPIRIN\METHOCARBAMOL
     Indication: Product used for unknown indication
     Dosage: 500 MILLIGRAM, 1 EVERY 5 DAYS (Q5D), DOSAGE FORM: NOT SPECIFIED
     Route: 048
  146. ROBAXISAL [Suspect]
     Active Substance: ASPIRIN\METHOCARBAMOL
     Dosage: 400 MILLIGRAM, 1 EVERY 5 DAYS (Q5D)
     Route: 065
  147. ROBAXISAL [Suspect]
     Active Substance: ASPIRIN\METHOCARBAMOL
     Dosage: 500 MILLIGRAM, 2 EVERY 1 DAYS (1 EVERY 12 HOURS)  (DOSAGE FORM: NOT SPECIFIED)
     Route: 048
  148. ROBAXISAL [Suspect]
     Active Substance: ASPIRIN\METHOCARBAMOL
     Dosage: 400 MILLIGRAM, 2 EVERY 1 DAYS (1 EVERY 12 HOURS) (DOSAGE FORM: NOT SPECIFIED)
     Route: 048
  149. POLYETHYLENE GLYCOL\POTASSIUM CHLORIDE\SODIUM BICARBONATE [Concomitant]
     Active Substance: POLYETHYLENE GLYCOL\POTASSIUM CHLORIDE\SODIUM BICARBONATE
     Dosage: UNK (DOSAGE FORM: NOT SPECIFIED)
     Route: 065
  150. VITAMIN C [Concomitant]
     Active Substance: ASCORBIC ACID
     Indication: Product used for unknown indication
     Dosage: UNK
     Route: 065
  151. POLYETHYLENE GLYCOL\POTASSIUM CHLORIDE\SODIUM BICARBONATE [Concomitant]
     Active Substance: POLYETHYLENE GLYCOL\POTASSIUM CHLORIDE\SODIUM BICARBONATE
     Indication: Product used for unknown indication
     Dosage: UNK; DOSAGE FORM: NOT SPECIFIED
     Route: 065

REACTIONS (13)
  - Drug abuse [Recovered/Resolved]
  - Drug dependence [Recovered/Resolved]
  - Drug ineffective [Recovered/Resolved]
  - Off label use [Unknown]
  - Product prescribing error [Unknown]
  - Product use issue [Unknown]
  - Respiratory depression [Recovered/Resolved]
  - Epidural lipomatosis [Unknown]
  - Intentional product misuse [Unknown]
  - Juvenile idiopathic arthritis [Unknown]
  - Obesity [Unknown]
  - Victim of child abuse [Recovered/Resolved]
  - Child abuse [Recovered/Resolved]
